FAERS Safety Report 9813491 (Version 3)
Quarter: 2015Q4

REPORT INFORMATION
  Report Type: Spontaneous
  Country: US (occurrence: US)
  Receive Date: 20140113
  Receipt Date: 20151005
  Transmission Date: 20160305
  Serious: Yes (Hospitalization, Disabling, Other)
  Sender: FDA-Public Use
  Company Number: US-009507513-1401USA001045

PATIENT
  Sex: Female

DRUGS (1)
  1. FOSAMAX [Suspect]
     Active Substance: ALENDRONATE SODIUM
     Indication: OSTEOPOROSIS
     Dosage: UNK, UNKNOWN
     Route: 048
     Dates: start: 1999, end: 20080212

REACTIONS (17)
  - Hypothyroidism [Unknown]
  - Hyperlipidaemia [Unknown]
  - Fall [Unknown]
  - Hypertension [Unknown]
  - Thyroid disorder [Unknown]
  - Dental implantation [Unknown]
  - Diabetic neuropathy [Unknown]
  - Vascular calcification [Unknown]
  - Muscle strain [Unknown]
  - Coronary artery disease [Unknown]
  - Gastrooesophageal reflux disease [Unknown]
  - Nephropathy [Unknown]
  - Uterine disorder [Unknown]
  - Increased tendency to bruise [Unknown]
  - Appendix disorder [Unknown]
  - Cataract [Unknown]
  - Femur fracture [Recovered/Resolved]

NARRATIVE: CASE EVENT DATE: 2000
